FAERS Safety Report 17754882 (Version 1)
Quarter: 2020Q2

REPORT INFORMATION
  Report Type: Spontaneous
  Country: KR (occurrence: KR)
  Receive Date: 20200507
  Receipt Date: 20200507
  Transmission Date: 20200714
  Serious: Yes (Other)
  Sender: FDA-Public Use
  Company Number: KR-HORIZON-VIM-0065-2020

PATIENT
  Age: 56 Year
  Sex: Female

DRUGS (3)
  1. SULFASALAZINE. [Concomitant]
     Active Substance: SULFASALAZINE
  2. HYDROCHLOROQUINE SULFATE [Concomitant]
  3. VIMOVO [Suspect]
     Active Substance: ESOMEPRAZOLE MAGNESIUM\NAPROXEN
     Indication: PRODUCT USED FOR UNKNOWN INDICATION
     Dosage: 500/20MG, 1 TABLET, TWICE A DAY
     Route: 048

REACTIONS (1)
  - Drug reaction with eosinophilia and systemic symptoms [Unknown]
